FAERS Safety Report 5563906-6 (Version None)
Quarter: 2007Q4

REPORT INFORMATION
  Report Type: 
  Country: None (occurrence: None)
  Receive Date: 20071217
  Receipt Date: 20071211
  Transmission Date: 20080405
  Serious: Yes (Hospitalization)
  Sender: FDA-Public Use
  Company Number: BE-WYE-G00755007

PATIENT
  Age: 50 Year
  Sex: Female

DRUGS (2)
  1. EFFEXOR [Suspect]
     Route: 048
  2. MIRTAZAPINE [Concomitant]
     Dosage: NOT PROVIDED
     Route: 048

REACTIONS (1)
  - SPLENIC HAEMORRHAGE [None]
